FAERS Safety Report 5801159-1 (Version None)
Quarter: 2008Q3

REPORT INFORMATION
  Report Type: 
  Country: None (occurrence: None)
  Receive Date: 20080707
  Receipt Date: 20080627
  Transmission Date: 20090109
  Serious: Yes (Other)
  Sender: FDA-Public Use
  Company Number: PHHY2008DE12452

PATIENT
  Age: 20 Year
  Sex: Male

DRUGS (2)
  1. RITALIN LA [Suspect]
     Dosage: 20-30MG/DAY
     Route: 048
     Dates: start: 20080401
  2. ANTIBIOTICS [Concomitant]
     Route: 048

REACTIONS (2)
  - HALLUCINATION [None]
  - RETROGRADE AMNESIA [None]
